FAERS Safety Report 16181382 (Version 3)
Quarter: 2019Q2

REPORT INFORMATION
  Report Type: Report from Study
  Country: None (occurrence: PR)
  Receive Date: 20190410
  Receipt Date: 20190521
  Transmission Date: 20190711
  Serious: Yes (Hospitalization, Other)
  Sender: FDA-Public Use
  Company Number: PR-ABBVIE-19S-163-2694192-00

PATIENT
  Age: 72 Year
  Sex: Male
  Weight: 59.02 kg

DRUGS (8)
  1. DUOPA [Suspect]
     Active Substance: CARBIDOPA\LEVODOPA
     Dosage: LOWERED DUOPA DOSAGE
     Route: 050
     Dates: start: 2019
  2. DUOPA [Suspect]
     Active Substance: CARBIDOPA\LEVODOPA
     Indication: PARKINSON^S DISEASE
     Route: 050
     Dates: start: 20190213, end: 20190306
  3. LISINOPRIL. [Concomitant]
     Active Substance: LISINOPRIL
     Indication: PRODUCT USED FOR UNKNOWN INDICATION
     Route: 065
  4. DUOPA [Suspect]
     Active Substance: CARBIDOPA\LEVODOPA
     Route: 050
     Dates: start: 20190329, end: 20190331
  5. MIRALAX [Concomitant]
     Active Substance: POLYETHYLENE GLYCOL 3350
     Indication: CONSTIPATION
     Dosage: WHEN NECESSARY
     Route: 065
  6. AMANTADINE. [Concomitant]
     Active Substance: AMANTADINE HYDROCHLORIDE
     Indication: PRODUCT USED FOR UNKNOWN INDICATION
     Route: 065
  7. DUOPA [Suspect]
     Active Substance: CARBIDOPA\LEVODOPA
     Dosage: MDFROM11TO9,CDFROM2.4TO2.0,EDFROM1.0TO0.8 ML EVERY 2 HOURS?RE-ADJUSTED 2.1 CD, 1.0 ED
     Route: 050
     Dates: start: 20190422
  8. MIRTAZAPINE. [Concomitant]
     Active Substance: MIRTAZAPINE
     Indication: PRODUCT USED FOR UNKNOWN INDICATION
     Route: 065

REACTIONS (25)
  - Blood glucose decreased [Not Recovered/Not Resolved]
  - Haemorrhage [Unknown]
  - Dehydration [Not Recovered/Not Resolved]
  - Device dislocation [Not Recovered/Not Resolved]
  - Fall [Recovered/Resolved]
  - Dehydration [Recovered/Resolved]
  - Unresponsive to stimuli [Recovering/Resolving]
  - Vomiting [Recovered/Resolved]
  - Calcinosis [Unknown]
  - Renal cyst [Unknown]
  - Tremor [Unknown]
  - Nausea [Recovered/Resolved]
  - Vomiting [Recovered/Resolved]
  - Haematuria [Unknown]
  - Aspiration [Unknown]
  - Dyskinesia [Recovering/Resolving]
  - Nausea [Not Recovered/Not Resolved]
  - Blood glucose decreased [Unknown]
  - Pneumonia aspiration [Recovered/Resolved]
  - Vomiting [Recovered/Resolved]
  - White blood cell count increased [Not Recovered/Not Resolved]
  - Blood magnesium decreased [Unknown]
  - Nausea [Recovered/Resolved]
  - Blood potassium decreased [Unknown]
  - Bradykinesia [Recovering/Resolving]

NARRATIVE: CASE EVENT DATE: 2019
